FAERS Safety Report 8629852 (Version 2)
Quarter: 2012Q4

REPORT INFORMATION
  Report Type: 
  Country: US (occurrence: US)
  Receive Date: 20120622
  Receipt Date: 20120910
  Transmission Date: 20130627
  Serious: Yes (Hospitalization)
  Sender: FDA-Public Use
  Company Number: US-BAYER-2012-058971

PATIENT
  Age: 37 Year
  Sex: Female
  Weight: 74.83 kg

DRUGS (5)
  1. YASMIN [Suspect]
     Dosage: UNK
     Dates: start: 2008, end: 2010
  2. WELLBUTRIN [Concomitant]
     Indication: DEPRESSION
     Dosage: 300 mg, UNK
  3. NITROFURANTOIN [Concomitant]
     Dosage: 100 mg, UNK
  4. HYDROCODONE ACETAMINOPHEN [Concomitant]
     Dosage: 5mg-500mg
  5. PROPOXYPHENE [Concomitant]
     Dosage: 110-650mg

REACTIONS (4)
  - Deep vein thrombosis [Recovered/Resolved]
  - Injury [Recovered/Resolved]
  - Pain [None]
  - Pain [Recovered/Resolved]
